FAERS Safety Report 20152973 (Version 1)
Quarter: 2021Q4

REPORT INFORMATION
  Report Type: Spontaneous
  Country: GB (occurrence: GB)
  Receive Date: 20211206
  Receipt Date: 20211206
  Transmission Date: 20220303
  Serious: Yes (Life-Threatening, Hospitalization, Other)
  Sender: FDA-Public Use
  Company Number: None

PATIENT
  Age: 65 Year
  Sex: Male
  Weight: 106 kg

DRUGS (4)
  1. DOCETAXEL [Suspect]
     Active Substance: DOCETAXEL
     Indication: Non-small cell lung cancer stage III
     Dosage: 164 MG
     Route: 042
     Dates: start: 20211111
  2. FELODIPINE [Concomitant]
     Active Substance: FELODIPINE
     Indication: Essential hypertension
     Dosage: 5 MG
  3. LANSOPRAZOLE [Concomitant]
     Active Substance: LANSOPRAZOLE
     Dosage: 30 MG
  4. ROSUVASTATIN [Concomitant]
     Active Substance: ROSUVASTATIN
     Indication: Hypercholesterolaemia
     Dosage: 20 MG

REACTIONS (6)
  - Neutropenic sepsis [Recovering/Resolving]
  - Pyrexia [Unknown]
  - Tachycardia [Unknown]
  - Dyspnoea [Unknown]
  - Respiratory rate increased [Unknown]
  - Hypotension [Unknown]

NARRATIVE: CASE EVENT DATE: 20211118
